FAERS Safety Report 25126140 (Version 6)
Quarter: 2025Q3

REPORT INFORMATION
  Report Type: Spontaneous
  Country: JP (occurrence: JP)
  Receive Date: 20250326
  Receipt Date: 20250902
  Transmission Date: 20251020
  Serious: Yes (Hospitalization)
  Sender: NOVARTIS
  Company Number: JP-002147023-NVSJ2025JP003536

PATIENT
  Age: 36 Year
  Sex: Female
  Weight: 47.2 kg

DRUGS (1)
  1. KESIMPTA [Suspect]
     Active Substance: OFATUMUMAB
     Indication: Multiple sclerosis relapse
     Route: 058
     Dates: start: 20241129, end: 20250221

REACTIONS (4)
  - Immune reconstitution inflammatory syndrome [Recovered/Resolved with Sequelae]
  - Cognitive disorder [Unknown]
  - Mental impairment [Unknown]
  - Multiple sclerosis [Unknown]

NARRATIVE: CASE EVENT DATE: 20250201
